FAERS Safety Report 10575263 (Version 1)
Quarter: 2014Q4

REPORT INFORMATION
  Report Type: Spontaneous
  Country: US (occurrence: None)
  Receive Date: 20141107
  Receipt Date: 20141107
  Transmission Date: 20150529
  Serious: Yes (Other)
  Sender: FDA-Public Use
  Company Number: 2014SA149406

PATIENT
  Sex: Female

DRUGS (1)
  1. GOLD BOND PAIN RELIEVING FOOT CREAM / UNKNOWN / UNKNOWN [Suspect]
     Active Substance: MENTHOL

REACTIONS (1)
  - Diabetes mellitus [None]
